FAERS Safety Report 7109809-7 (Version None)
Quarter: 2010Q4

REPORT INFORMATION
  Report Type: 
  Country: None (occurrence: None)
  Receive Date: 20101116
  Receipt Date: 20101116
  Transmission Date: 20110411
  Serious: No
  Sender: FDA-Public Use
  Company Number: None

PATIENT
  Sex: Male
  Weight: 50.8029 kg

DRUGS (2)
  1. ADAPALENE [Suspect]
     Indication: ACNE
     Dosage: ADAPTIVE DAILY TOPICAL
     Route: 061
  2. DIFFERIN [Suspect]

REACTIONS (2)
  - DERMATITIS ALLERGIC [None]
  - PRODUCT SUBSTITUTION ISSUE [None]
